FAERS Safety Report 5324362-6 (Version None)
Quarter: 2007Q2

REPORT INFORMATION
  Report Type: 
  Country: None (occurrence: None)
  Receive Date: 20070509
  Receipt Date: 20070423
  Transmission Date: 20071010
  Serious: Yes (Other)
  Sender: FDA-Public Use
  Company Number: S07-NLD-01850-01

PATIENT
  Age: 18 Year
  Sex: Female

DRUGS (1)
  1. CITALOPRAM HYDROBROMIDE [Suspect]
     Dates: start: 20070410, end: 20070413

REACTIONS (6)
  - CHEST DISCOMFORT [None]
  - DIZZINESS [None]
  - NAUSEA [None]
  - PULMONARY HAEMORRHAGE [None]
  - VISION BLURRED [None]
  - VOMITING [None]
